FAERS Safety Report 21419877 (Version 2)
Quarter: 2022Q4

REPORT INFORMATION
  Report Type: Spontaneous
  Country: DE (occurrence: DE)
  Receive Date: 20221006
  Receipt Date: 20221011
  Transmission Date: 20230112
  Serious: Yes (Other)
  Sender: FDA-Public Use
  Company Number: DE-BoehringerIngelheim-2022-BI-195687

PATIENT
  Age: 90 Year
  Sex: Female

DRUGS (9)
  1. JARDIANCE [Suspect]
     Active Substance: EMPAGLIFLOZIN
     Indication: Cardiac failure
     Dates: start: 20220201, end: 20220929
  2. Marcumar 3mg [Concomitant]
     Indication: Atrial fibrillation
     Dosage: AFTER SCHEDULE
  3. Telmisartan 1A Pharma 40mg Tabletten [Concomitant]
     Indication: Blood pressure abnormal
     Dosage: 1-0-1-0
  4. Bisoprolol AbZ 2.5mg Tabletten [Concomitant]
     Indication: Cardiac failure
     Dosage: 1-0-1-0
  5. Torasemid Stada 5mg Tabletten [Concomitant]
     Indication: Cardiac failure
     Dosage: 2-1-0-0
  6. Morphin 10 Retard Heumann [Concomitant]
     Indication: Pain
     Dosage: 1-0-1-0
  7. Mocovil Beutel [Concomitant]
     Indication: Product used for unknown indication
     Dosage: 1-0-0-0
  8. Tiotropium Glenmark 18mcg HKP m. Plv.z.Inh.+Inha [Concomitant]
     Indication: Chronic obstructive pulmonary disease
     Dosage: 1-0-0-0
  9. ALDACTONE [Concomitant]
     Active Substance: SPIRONOLACTONE
     Indication: Cardiac failure
     Dosage: 1-0-0-0

REACTIONS (4)
  - Cardiac failure [Recovered/Resolved]
  - Hypoglycaemia [Unknown]
  - Weight decreased [Unknown]
  - Blood pressure decreased [Unknown]
